FAERS Safety Report 19523169 (Version 1)
Quarter: 2021Q3

REPORT INFORMATION
  Report Type: Spontaneous
  Country: US (occurrence: US)
  Receive Date: 20210713
  Receipt Date: 20210713
  Transmission Date: 20211014
  Serious: Yes (Hospitalization, Other)
  Sender: FDA-Public Use
  Company Number: US-B.I. PHARMACEUTICALS,INC./RIDGEFIELD-2021-BI-114035

PATIENT
  Age: 73 Year
  Sex: Female

DRUGS (4)
  1. TRADJENTA [Suspect]
     Active Substance: LINAGLIPTIN
     Indication: TYPE 2 DIABETES MELLITUS
     Dosage: 5MG; 1 TABLET DAILY
     Route: 065
     Dates: start: 201904, end: 202104
  2. OZEMPIC [Concomitant]
     Active Substance: SEMAGLUTIDE
     Indication: PRODUCT USED FOR UNKNOWN INDICATION
     Dates: start: 202105, end: 202106
  3. TRULICITY [Concomitant]
     Active Substance: DULAGLUTIDE
     Indication: PRODUCT USED FOR UNKNOWN INDICATION
     Dates: start: 202106
  4. JARDIANCE [Suspect]
     Active Substance: EMPAGLIFLOZIN
     Indication: TYPE 2 DIABETES MELLITUS
     Dosage: 10MG; 1 TABLET DAILY
     Route: 065
     Dates: start: 20190127, end: 20190419

REACTIONS (6)
  - Urinary tract infection [Recovered/Resolved]
  - Pulmonary mass [Unknown]
  - Sepsis [Recovered/Resolved]
  - Carotid artery occlusion [Recovered/Resolved]
  - Goitre [Unknown]
  - Gastrooesophageal reflux disease [Recovered/Resolved]

NARRATIVE: CASE EVENT DATE: 2019
